FAERS Safety Report 21021704 (Version 3)
Quarter: 2023Q2

REPORT INFORMATION
  Report Type: Spontaneous
  Country: JP (occurrence: JP)
  Receive Date: 20220629
  Receipt Date: 20230613
  Transmission Date: 20230721
  Serious: Yes (Life-Threatening, Hospitalization)
  Sender: FDA-Public Use
  Company Number: JP-ACTELION-A-CH2017-163472

PATIENT
  Age: 41 Year
  Sex: Female
  Weight: 42 kg

DRUGS (26)
  1. UPTRAVI [Suspect]
     Active Substance: SELEXIPAG
     Indication: Pulmonary arterial hypertension
     Dosage: 0.2 MG, BID
     Route: 048
     Dates: start: 20170125, end: 20170131
  2. UPTRAVI [Suspect]
     Active Substance: SELEXIPAG
     Dosage: 0.4 MG, BID
     Route: 048
     Dates: start: 20170201, end: 20170207
  3. UPTRAVI [Suspect]
     Active Substance: SELEXIPAG
     Dosage: 0.6 MG, BID
     Route: 048
     Dates: start: 20170208, end: 20170214
  4. UPTRAVI [Suspect]
     Active Substance: SELEXIPAG
     Dosage: 0.8 MG, BID
     Route: 048
     Dates: start: 20170215, end: 20170221
  5. UPTRAVI [Suspect]
     Active Substance: SELEXIPAG
     Dosage: 0.9 MG, BID
     Route: 048
     Dates: start: 20170222, end: 20170228
  6. UPTRAVI [Suspect]
     Active Substance: SELEXIPAG
     Dosage: 1.0 MG, BID
     Route: 048
     Dates: start: 20170301, end: 20170307
  7. UPTRAVI [Suspect]
     Active Substance: SELEXIPAG
     Dosage: 1.1 MG, BID
     Route: 048
     Dates: start: 20170308, end: 20170314
  8. UPTRAVI [Suspect]
     Active Substance: SELEXIPAG
     Dosage: 1.2 MG, BID
     Route: 048
     Dates: start: 20170315, end: 20170321
  9. UPTRAVI [Suspect]
     Active Substance: SELEXIPAG
     Dosage: 1.3 MG, BID
     Route: 048
     Dates: start: 20170322, end: 20170328
  10. UPTRAVI [Suspect]
     Active Substance: SELEXIPAG
     Dosage: 1.4 MG, BID
     Route: 048
     Dates: start: 20170329, end: 20170418
  11. UPTRAVI [Suspect]
     Active Substance: SELEXIPAG
     Dosage: 1.5 MG, BID
     Route: 048
     Dates: start: 20170419, end: 20170425
  12. UPTRAVI [Suspect]
     Active Substance: SELEXIPAG
     Dosage: 1.6 MG, BID
     Route: 048
     Dates: start: 20170426
  13. MIZORIBINE [Suspect]
     Active Substance: MIZORIBINE
     Indication: Systemic scleroderma
     Dosage: 150 MG, QD
     Route: 048
  14. CILOSTAZOL [Suspect]
     Active Substance: CILOSTAZOL
     Indication: Systemic scleroderma
     Dosage: 200 MG, QD
     Route: 048
  15. AMBRISENTAN [Concomitant]
     Active Substance: AMBRISENTAN
     Indication: Pulmonary arterial hypertension
     Dosage: 10 MG, QD
     Route: 048
     Dates: start: 201706
  16. AMBRISENTAN [Concomitant]
     Active Substance: AMBRISENTAN
     Dosage: 7.5 MG, QD
     Route: 048
  17. ADCIRCA [Concomitant]
     Active Substance: TADALAFIL
     Indication: Pulmonary arterial hypertension
     Dosage: 40 MG, QD
     Route: 048
  18. HERBESSER [Concomitant]
     Active Substance: DILTIAZEM HYDROCHLORIDE
     Indication: Systemic scleroderma
     Dosage: 100 MG, QD
  19. .ALPHA.-TOCOPHEROL ACETATE [Concomitant]
     Active Substance: .ALPHA.-TOCOPHEROL ACETATE
     Indication: Systemic scleroderma
     Dosage: 300 MG, QD
  20. ELDECALCITOL [Concomitant]
     Active Substance: ELDECALCITOL
     Dosage: 0.75 UG, QD
  21. LASIX [Concomitant]
     Active Substance: FUROSEMIDE
     Indication: Oedema peripheral
     Dosage: 20 MG, QD
     Dates: start: 20170322
  22. GASLON [Concomitant]
     Active Substance: IRSOGLADINE MALEATE
     Indication: Stomatitis
     Dosage: 4 MG, QD
     Dates: start: 20170705
  23. MIYA-BM [Concomitant]
     Active Substance: CLOSTRIDIUM BUTYRICUM SPORES STRAIN M-55
     Indication: Chronic gastritis
     Dosage: 3 DF, QD
     Dates: start: 20170607
  24. SYMBICORT [Concomitant]
     Active Substance: BUDESONIDE\FORMOTEROL FUMARATE DIHYDRATE
     Indication: Asthma
     Dosage: 2 DF, QD
  25. PRANLUKAST [Concomitant]
     Active Substance: PRANLUKAST
     Indication: Asthma
     Dosage: 450 MG, QD
  26. SULFAMETHOXAZOLE\TRIMETHOPRIM [Concomitant]
     Active Substance: SULFAMETHOXAZOLE\TRIMETHOPRIM
     Dosage: 1 DF, QD
     Dates: start: 20171230

REACTIONS (12)
  - Pneumonia [Recovered/Resolved with Sequelae]
  - Pneumonia [Recovered/Resolved]
  - Interstitial lung disease [Recovered/Resolved with Sequelae]
  - Influenza [Recovered/Resolved]
  - Stomatitis [Recovered/Resolved]
  - Concomitant disease aggravated [Not Recovered/Not Resolved]
  - Epistaxis [Recovering/Resolving]
  - Oedema peripheral [Recovering/Resolving]
  - Hot flush [Recovering/Resolving]
  - Brain natriuretic peptide increased [Not Recovered/Not Resolved]
  - Malaise [Recovered/Resolved]
  - Flushing [Recovering/Resolving]

NARRATIVE: CASE EVENT DATE: 20170222
